FAERS Safety Report 11899317 (Version 1)
Quarter: 2016Q1

REPORT INFORMATION
  Report Type: Spontaneous
  Country: US (occurrence: US)
  Receive Date: 20160108
  Receipt Date: 20160108
  Transmission Date: 20160526
  Serious: No
  Sender: FDA-Public Use
  Company Number: US-SA-2015SA168174

PATIENT
  Age: 27 Year
  Sex: Male

DRUGS (1)
  1. AFREZZA [Suspect]
     Active Substance: INSULIN HUMAN
     Dosage: DOSE:24-32 UNITS?FREQUENCY:BEFORE MEALS
     Route: 055
     Dates: start: 20150909, end: 20150925

REACTIONS (1)
  - Muscle spasms [Recovered/Resolved]
